FAERS Safety Report 6056054-2 (Version None)
Quarter: 2009Q1

REPORT INFORMATION
  Report Type: 
  Country: None (occurrence: None)
  Receive Date: 20090126
  Receipt Date: 20090114
  Transmission Date: 20090719
  Serious: Yes (Other)
  Sender: FDA-Public Use
  Company Number: 100#03#2009-00143

PATIENT
  Sex: Male

DRUGS (2)
  1. METFORMIN HCL [Suspect]
     Indication: DRUG USE FOR UNKNOWN INDICATION
  2. CAPTOPRIL [Suspect]
     Indication: DRUG USE FOR UNKNOWN INDICATION

REACTIONS (1)
  - THROMBOTIC THROMBOCYTOPENIC PURPURA [None]
